FAERS Safety Report 10594488 (Version 1)
Quarter: 2014Q4

REPORT INFORMATION
  Report Type: Spontaneous
  Country: GB (occurrence: GB)
  Receive Date: 20141119
  Receipt Date: 20141119
  Transmission Date: 20150529
  Serious: Yes (Other)
  Sender: FDA-Public Use
  Company Number: GB-ABBVIE-14K-167-1309422-00

PATIENT
  Sex: Male

DRUGS (1)
  1. HUMIRA [Suspect]
     Active Substance: ADALIMUMAB
     Indication: CROHN^S DISEASE
     Route: 065
     Dates: start: 2010, end: 201410

REACTIONS (2)
  - Skin exfoliation [Not Recovered/Not Resolved]
  - Blister [Not Recovered/Not Resolved]

NARRATIVE: CASE EVENT DATE: 201410
